FAERS Safety Report 7660494-5 (Version None)
Quarter: 2011Q3

REPORT INFORMATION
  Report Type: 
  Country: None (occurrence: None)
  Receive Date: 20110805
  Receipt Date: 20110727
  Transmission Date: 20111222
  Serious: Yes (Other)
  Sender: FDA-Public Use
  Company Number: CH-ASTRAZENECA-2011SE45031

PATIENT
  Age: 74 Year
  Sex: Female

DRUGS (10)
  1. NORVASC [Suspect]
     Route: 048
     Dates: end: 20110622
  2. NEXIUM [Suspect]
     Route: 048
     Dates: end: 20110628
  3. PHENYTOIN [Suspect]
     Route: 048
     Dates: end: 20110623
  4. IMOVANE [Concomitant]
  5. NORVASC [Suspect]
     Route: 048
     Dates: end: 20110622
  6. PHENYTOIN [Suspect]
     Route: 048
     Dates: start: 20090101
  7. TENORMIN [Concomitant]
  8. ACETAMINOPHEN [Suspect]
     Route: 048
     Dates: end: 20110622
  9. KEPPRA [Concomitant]
     Route: 048
     Dates: start: 20090101
  10. NEURONTIN [Concomitant]
     Route: 048
     Dates: start: 20090101

REACTIONS (2)
  - LIVER INJURY [None]
  - HEPATIC ENZYME INCREASED [None]
